FAERS Safety Report 11939888 (Version 1)
Quarter: 2016Q1

REPORT INFORMATION
  Report Type: Spontaneous
  Country: JP (occurrence: JP)
  Receive Date: 20160122
  Receipt Date: 20160122
  Transmission Date: 20160526
  Serious: Yes (Other)
  Sender: FDA-Public Use
  Company Number: JP-BAYER-2016-010265

PATIENT

DRUGS (1)
  1. NEXAVAR [Suspect]
     Active Substance: SORAFENIB
     Indication: HEPATOBLASTOMA
     Dosage: 100-200MG/M2/DOSE, BID
     Route: 048

REACTIONS (5)
  - Febrile neutropenia [None]
  - Sepsis [None]
  - Diarrhoea [None]
  - Transaminases increased [None]
  - Cytopenia [None]
